FAERS Safety Report 6438207 (Version 2)
Quarter: 2014Q1

REPORT INFORMATION
  Report Type: Spontaneous
  Country: BM (occurrence: BM)
  Receive Date: 20071009
  Receipt Date: 20140325
  Transmission Date: 20141002
  Serious: Yes (Life-Threatening, Other)
  Sender: FDA-Public Use
  Company Number: BM-ASTRAZENECA-2007AC01880

PATIENT
  Age: 18 Year
  Sex: Female
  Weight: 86 kg

DRUGS (4)
  1. BUPIVACAINE [Suspect]
     Indication: EPIDURAL ANALGESIA
     Route: 008
  2. BUPIVACAINE [Suspect]
     Indication: EPIDURAL ANALGESIA
     Route: 008
  3. LIDOCAINE [Concomitant]
     Route: 008
  4. FENTANYL [Concomitant]
     Dosage: 100 UG IN 6 ML
     Route: 008

REACTIONS (6)
  - Loss of consciousness [Recovered/Resolved]
  - Blood pressure increased [Recovered/Resolved]
  - Heart rate increased [Recovered/Resolved]
  - Muscle twitching [Recovered/Resolved]
  - Restlessness [Recovered/Resolved]
  - Agitation [Recovered/Resolved]
